FAERS Safety Report 4745636-3 (Version None)
Quarter: 2005Q3

REPORT INFORMATION
  Report Type: 
  Country: None (occurrence: None)
  Receive Date: 20050815
  Receipt Date: 20050802
  Transmission Date: 20060218
  Serious: Yes (Hospitalization)
  Sender: FDA-Public Use
  Company Number: 201162

PATIENT
  Age: 35 Year
  Sex: Female

DRUGS (3)
  1. HERCEPTIN [Suspect]
     Indication: BREAST CANCER
     Dosage: 140 MG, 1/WEEK, INTRVENOUS
     Route: 042
     Dates: start: 20030421, end: 20030521
  2. DOCETAXEL (DOCETAXEL) [Suspect]
     Indication: BREAST CANCER
  3. MULTI-VITAMINS [Concomitant]

REACTIONS (2)
  - CATHETER RELATED INFECTION [None]
  - NEUTROPENIC INFECTION [None]
